FAERS Safety Report 4284601-X (Version None)
Quarter: 2004Q1

REPORT INFORMATION
  Report Type: 
  Country: None (occurrence: None)
  Receive Date: 20040130
  Receipt Date: 20040119
  Transmission Date: 20041129
  Serious: Yes (Death, Hospitalization, Other)
  Sender: FDA-Public Use
  Company Number: 200410509GDDC

PATIENT
  Age: 79 Year
  Sex: Female

DRUGS (2)
  1. GLYBURIDE [Suspect]
     Dosage: 2.5 MG BID
  2. OTHER MEDICATIONS [Concomitant]

REACTIONS (11)
  - ASPIRATION [None]
  - BLOOD CREATININE DECREASED [None]
  - CARDIAC ARREST [None]
  - DEPRESSED LEVEL OF CONSCIOUSNESS [None]
  - DYSPNOEA [None]
  - GENERAL PHYSICAL HEALTH DETERIORATION [None]
  - HYPOGLYCAEMIA [None]
  - PNEUMONIA [None]
  - PULMONARY OEDEMA [None]
  - SOMNOLENCE [None]
  - VOMITING [None]
